FAERS Safety Report 6896375-4 (Version None)
Quarter: 2010Q3

REPORT INFORMATION
  Report Type: 
  Country: None (occurrence: None)
  Receive Date: 20100726
  Receipt Date: 20100708
  Transmission Date: 20110219
  Serious: Yes (Hospitalization, Other)
  Sender: FDA-Public Use
  Company Number: 20100708CINRY1546

PATIENT
  Age: 44 Year
  Sex: Female

DRUGS (24)
  1. CINRYZE [Suspect]
     Indication: HEREDITARY ANGIOEDEMA
     Dosage: (1000 UNIT, 3 IN 1 WK), INTRAVENOUS
     Route: 042
     Dates: start: 20081201
  2. CINRYZE [Suspect]
     Indication: PROPHYLAXIS
     Dosage: (1000 UNIT, 3 IN 1 WK), INTRAVENOUS
     Route: 042
     Dates: start: 20081201
  3. CORTISPORTIN OTIC (OTOSPORIN) [Concomitant]
  4. ASPIRIN [Concomitant]
  5. AMITRIPTYLINE HYDROCHLORIDE [Concomitant]
  6. DANAZOL [Concomitant]
  7. DILAUDID [Concomitant]
  8. ZOFRAN [Concomitant]
  9. BENADRYL [Concomitant]
  10. DILANTIN [Concomitant]
  11. FOSAMAX [Concomitant]
  12. BENTYL [Concomitant]
  13. NASONEX [Concomitant]
  14. PROMETHAZINE (PROMETHAZINE) (SUPPOSITORY) [Concomitant]
  15. ALBUTEROL HFA (SALBUTAMOL) [Concomitant]
  16. ASMANEX INHALER (MOMETASONE FUROATE) (INHALENT) [Concomitant]
  17. SPIRIVA [Concomitant]
  18. OXYCODONE/ACETAMINOPHEN (PERCOCET-5) [Concomitant]
  19. ATENOLOL [Concomitant]
  20. TRICOR (ADENOSINE) [Concomitant]
  21. FIORICET [Concomitant]
  22. FLEXERIL [Concomitant]
  23. DESYREL [Concomitant]
  24. PROTONIX [Concomitant]

REACTIONS (14)
  - ARTERIOSCLEROSIS [None]
  - CELLULITIS [None]
  - COLITIS [None]
  - DUODENITIS [None]
  - FEELING COLD [None]
  - ILEUS [None]
  - INFUSION RELATED REACTION [None]
  - INTESTINAL ISCHAEMIA [None]
  - LARGE INTESTINAL ULCER [None]
  - NAUSEA [None]
  - NEPHROLITHIASIS [None]
  - OESOPHAGITIS [None]
  - PANCREATITIS ACUTE [None]
  - PHLEBOLITH [None]
